FAERS Safety Report 19259962 (Version 4)
Quarter: 2021Q3

REPORT INFORMATION
  Report Type: Report from Study
  Country: US (occurrence: US)
  Receive Date: 20210514
  Receipt Date: 20210818
  Transmission Date: 20211014
  Serious: Yes (Hospitalization, Other)
  Sender: FDA-Public Use
  Company Number: US-INCYTE CORPORATION-2021IN004193

PATIENT

DRUGS (3)
  1. AMLODIPINE [Concomitant]
     Active Substance: AMLODIPINE BESYLATE
     Indication: PRODUCT USED FOR UNKNOWN INDICATION
     Dosage: UNK
     Route: 065
  2. JAKAFI [Suspect]
     Active Substance: RUXOLITINIB
     Indication: MYELOFIBROSIS
     Dosage: 10 MILLIGRAM, BID
     Route: 048
     Dates: start: 20210325
  3. VITAMINS NOS [Concomitant]
     Active Substance: VITAMINS
     Indication: PRODUCT USED FOR UNKNOWN INDICATION
     Dosage: UNK
     Route: 065

REACTIONS (13)
  - Product dose omission issue [Unknown]
  - Nasopharyngitis [Recovering/Resolving]
  - Myalgia [Recovering/Resolving]
  - Back pain [Unknown]
  - Ligament rupture [Unknown]
  - White blood cell count increased [Unknown]
  - Musculoskeletal discomfort [Not Recovered/Not Resolved]
  - Pain [Unknown]
  - Muscle discomfort [Not Recovered/Not Resolved]
  - Product availability issue [Unknown]
  - Hip fracture [Unknown]
  - Fall [Unknown]
  - Thrombocytosis [Not Recovered/Not Resolved]

NARRATIVE: CASE EVENT DATE: 2021
